FAERS Safety Report 9260982 (Version 1)
Quarter: 2013Q2

REPORT INFORMATION
  Report Type: Spontaneous
  Country: US (occurrence: US)
  Receive Date: 20130429
  Receipt Date: 20130429
  Transmission Date: 20140414
  Serious: No
  Sender: FDA-Public Use
  Company Number: US-AMGEN-USASP2012038403

PATIENT
  Age: 40 Year
  Sex: Female
  Weight: 85.26 kg

DRUGS (19)
  1. SENSIPAR [Suspect]
     Indication: RENAL FAILURE CHRONIC
     Dosage: 30 MG, QD
     Dates: start: 20120613
  2. NEPHRO-VITE [Concomitant]
     Dosage: UNK
     Dates: start: 20080419
  3. PROCARDIA [Concomitant]
     Dosage: 60 MG, QD
     Dates: start: 20080419
  4. REGLAN [Concomitant]
     Dosage: 10 MG, PRN
     Dates: start: 20091109
  5. RENAGEL [Concomitant]
     Dosage: UNK
     Dates: start: 20100924
  6. SODIUM BICARBONATE [Concomitant]
     Dosage: 650 MG, QD
     Dates: start: 20091116
  7. TYLENOL [Concomitant]
     Dosage: 650 MG, PRN
     Dates: start: 20091109
  8. XANAX [Concomitant]
     Dosage: 2 MG, QD
     Dates: start: 20110328
  9. ZEMPLAR [Concomitant]
     Dosage: UNK
     Dates: start: 20120613
  10. BENADRYL [Concomitant]
     Dosage: 50 MG, PRN
     Dates: start: 20110115
  11. CATAPRES [Concomitant]
     Dosage: .1 MG, QD
     Dates: start: 20090317
  12. CLONIDINE [Concomitant]
     Dosage: .1 MG, PRN
     Dates: start: 20110115
  13. COUMADIN [Concomitant]
     Dosage: 2 MG, QD
     Dates: start: 20100924
  14. CYMBALTA [Concomitant]
     Dosage: 60 MG, QD
     Dates: start: 20120111
  15. EPOGEN [Concomitant]
     Dosage: UNK
     Dates: start: 20120610
  16. FERRLECIT [Concomitant]
     Dosage: 62.5 MG, QWK
     Dates: start: 20120610
  17. IMODIUM [Concomitant]
     Dosage: 2 MG, PRN
     Dates: start: 20110115
  18. LASIX [Concomitant]
     Dosage: 40 MG, BID
     Dates: start: 20100924
  19. LORATADINE [Concomitant]
     Dosage: 10 MG, QD
     Dates: start: 20090317

REACTIONS (2)
  - Nausea [Recovered/Resolved]
  - Vomiting [Not Recovered/Not Resolved]
